FAERS Safety Report 20891519 (Version 1)
Quarter: 2022Q2

REPORT INFORMATION
  Report Type: Spontaneous
  Country: CN (occurrence: None)
  Receive Date: 20220530
  Receipt Date: 20220530
  Transmission Date: 20220721
  Serious: Yes (Other)
  Sender: FDA-Public Use
  Company Number: 2022A198865

PATIENT
  Age: 58 Year
  Sex: Male
  Weight: 51 kg

DRUGS (1)
  1. IMFINZI [Suspect]
     Active Substance: DURVALUMAB
     Indication: Small cell lung cancer extensive stage
     Dosage: 1000MG/PERIOD
     Route: 030
     Dates: start: 20210723

REACTIONS (1)
  - Immune-mediated lung disease [Unknown]
